FAERS Safety Report 5229986-2 (Version None)
Quarter: 2007Q1

REPORT INFORMATION
  Report Type: 
  Country: None (occurrence: None)
  Receive Date: 20070206
  Receipt Date: 20070122
  Transmission Date: 20070707
  Serious: Yes (Other)
  Sender: FDA-Public Use
  Company Number: PHEH2006US14726

PATIENT
  Age: 76 Year
  Sex: Male

DRUGS (1)
  1. GLEEVEC [Suspect]
     Indication: CHRONIC MYELOID LEUKAEMIA
     Dosage: 400 MG, QD
     Route: 048
     Dates: start: 20021101

REACTIONS (7)
  - ARTIFICIAL CROWN PROCEDURE [None]
  - BONE FORMATION DECREASED [None]
  - GINGIVAL PAIN [None]
  - IMPAIRED HEALING [None]
  - SENSITIVITY OF TEETH [None]
  - TOOTH ABSCESS [None]
  - TOOTH EXTRACTION [None]
